FAERS Safety Report 15887519 (Version 1)
Quarter: 2019Q1

REPORT INFORMATION
  Report Type: Spontaneous
  Country: FR (occurrence: FR)
  Receive Date: 20190130
  Receipt Date: 20190130
  Transmission Date: 20190417
  Serious: Yes (Death, Hospitalization)
  Sender: FDA-Public Use
  Company Number: FR-ACCORD-104225

PATIENT
  Age: 77 Year
  Sex: Male

DRUGS (17)
  1. IXPRIM [Concomitant]
     Active Substance: ACETAMINOPHEN\TRAMADOL HYDROCHLORIDE
  2. AMLODIPINE [Concomitant]
     Active Substance: AMLODIPINE BESYLATE
  3. ATARAX [Concomitant]
     Active Substance: HYDROXYZINE HYDROCHLORIDE
     Dosage: STRENGTH : 25MG
  4. LOXAPAC [Concomitant]
     Active Substance: LOXAPINE
  5. ESOMEPRAZOLE/ESOMEPRAZOLE MAGNESIUM/ESOMEPRAZOLE SODIUM [Concomitant]
  6. LOVENOX [Concomitant]
     Active Substance: ENOXAPARIN SODIUM
  7. DIFFU K [Concomitant]
     Active Substance: POTASSIUM CHLORIDE
  8. FOLIC ACID. [Concomitant]
     Active Substance: FOLIC ACID
  9. KARDEGIC [Concomitant]
     Active Substance: ASPIRIN DL-LYSINE
     Dosage: STRENGTH : 75 MG
  10. PARKINANE LP [Concomitant]
     Active Substance: TRIHEXYPHENIDYL HYDROCHLORIDE
     Dosage: STRENGTH : 5 MG
  11. MACROGOL 1000 [Concomitant]
  12. NOCTAMIDE [Concomitant]
     Active Substance: LORMETAZEPAM
     Dosage: STRENGTH : 2 MG
  13. PRAVASTATIN. [Concomitant]
     Active Substance: PRAVASTATIN
  14. TARDYFERON [Concomitant]
     Active Substance: FERROUS SULFATE
  15. LORAZEPAM. [Concomitant]
     Active Substance: LORAZEPAM
  16. IRINOTECAN [Suspect]
     Active Substance: IRINOTECAN
     Indication: NEUROENDOCRINE CARCINOMA
     Route: 042
  17. ALLOPURINOL. [Concomitant]
     Active Substance: ALLOPURINOL

REACTIONS (7)
  - Dyspnoea [Unknown]
  - Diarrhoea [Recovering/Resolving]
  - Dehydration [Recovered/Resolved]
  - Acute kidney injury [Recovered/Resolved]
  - Asthenia [Unknown]
  - General physical health deterioration [Unknown]
  - Off label use [Unknown]

NARRATIVE: CASE EVENT DATE: 20160329
